FAERS Safety Report 18431241 (Version 1)
Quarter: 2020Q4

REPORT INFORMATION
  Report Type: Spontaneous
  Country: US (occurrence: US)
  Receive Date: 20201027
  Receipt Date: 20201027
  Transmission Date: 20210114
  Serious: Yes (Hospitalization, Other)
  Sender: FDA-Public Use
  Company Number: US-SA-2020SA301350

PATIENT

DRUGS (10)
  1. CLOPIDOGREL BISULFATE. [Suspect]
     Active Substance: CLOPIDOGREL BISULFATE
     Dosage: UNK
  2. ATORVASTATIN [Concomitant]
     Active Substance: ATORVASTATIN
     Dosage: UNK
  3. ALLOPURINOL. [Concomitant]
     Active Substance: ALLOPURINOL
  4. APIXABAN [Suspect]
     Active Substance: APIXABAN
     Dosage: UNK
  5. ELIQUIS [Suspect]
     Active Substance: APIXABAN
     Indication: ATRIAL FIBRILLATION
     Dosage: 5 MG, BID
     Route: 065
     Dates: end: 20201010
  6. LOSARTAN. [Concomitant]
     Active Substance: LOSARTAN
  7. RANOLAZINE. [Concomitant]
     Active Substance: RANOLAZINE
  8. ISOSORBIDE. [Concomitant]
     Active Substance: ISOSORBIDE
  9. METOPROLOL. [Concomitant]
     Active Substance: METOPROLOL
     Dosage: UNK
     Route: 065
  10. TORSEMIDE. [Concomitant]
     Active Substance: TORSEMIDE

REACTIONS (3)
  - Contusion [Unknown]
  - Blood urine present [Recovered/Resolved]
  - Haemorrhage [Recovered/Resolved]
